FAERS Safety Report 11388473 (Version 2)
Quarter: 2015Q4

REPORT INFORMATION
  Report Type: Spontaneous
  Country: JP (occurrence: JP)
  Receive Date: 20150817
  Receipt Date: 20151214
  Transmission Date: 20160304
  Serious: Yes (Death, Life-Threatening, Other)
  Sender: FDA-Public Use
  Company Number: JP-TEVA-585082ISR

PATIENT
  Age: 56 Year
  Sex: Female
  Weight: 62 kg

DRUGS (31)
  1. FENTOS [Concomitant]
     Active Substance: FENTANYL
     Indication: CANCER PAIN
     Dosage: 3 MILLIGRAM DAILY;
     Route: 062
     Dates: start: 20150601, end: 20150628
  2. DESYREL [Concomitant]
     Active Substance: TRAZODONE HYDROCHLORIDE
     Route: 048
     Dates: start: 20150629, end: 20150629
  3. BFLUID [Concomitant]
     Active Substance: AMINO ACIDS\DEXTROSE\ELECTROLYTES NOS\VITAMINS
     Route: 041
     Dates: start: 20150621, end: 20150706
  4. E-FEN BUCCAL [Suspect]
     Active Substance: FENTANYL CITRATE
     Dosage: DAILY DOSE: 0 MICROGRAM-400 MICROGRAM
     Route: 002
     Dates: start: 20150603, end: 20150616
  5. NOVAMIN [Concomitant]
     Active Substance: PROCHLORPERAZINE MALEATE
     Indication: PROPHYLAXIS
     Dosage: 15 MILLIGRAM DAILY;
     Route: 048
     Dates: end: 20150626
  6. PRIMPERAN [Concomitant]
     Active Substance: METOCLOPRAMIDE HYDROCHLORIDE
     Dosage: 5 MILLIGRAM DAILY;
     Route: 048
     Dates: start: 20150616, end: 20150625
  7. AKINETON [Concomitant]
     Active Substance: BIPERIDEN HYDROCHLORIDE
     Indication: DELIRIUM
     Dosage: 5 MILLIGRAM DAILY;
     Route: 041
     Dates: start: 20150626, end: 20150626
  8. CEFTAZIDIME HYDRATE [Concomitant]
     Active Substance: CEFTAZIDIME
     Dosage: 2 GRAM DAILY;
     Route: 041
     Dates: start: 20150621, end: 20150625
  9. SODIUM CHLORIDE. [Concomitant]
     Active Substance: SODIUM CHLORIDE
     Dosage: 4 GRAM DAILY;
     Route: 041
     Dates: start: 20150626, end: 20150706
  10. LYRICA [Concomitant]
     Active Substance: PREGABALIN
     Indication: CANCER PAIN
     Dosage: 150 MILLIGRAM DAILY;
     Route: 048
     Dates: start: 20150526, end: 20150622
  11. ROZEUS [Concomitant]
     Dates: start: 20150612, end: 20150612
  12. LOXOPROFEN [Concomitant]
     Active Substance: LOXOPROFEN
     Indication: CANCER PAIN
     Dosage: 180 MILLIGRAM DAILY;
     Route: 048
     Dates: end: 20150620
  13. LYRICA [Concomitant]
     Active Substance: PREGABALIN
     Dosage: 75 MILLIGRAM DAILY;
     Route: 048
     Dates: start: 20150623, end: 20150705
  14. CALONAL [Concomitant]
     Active Substance: ACETAMINOPHEN
     Dosage: 2400 MILLIGRAM DAILY;
     Route: 048
     Dates: start: 20150621, end: 20150705
  15. ROZEUS [Concomitant]
     Indication: CHEMOTHERAPY
  16. FUROSEMIDE. [Concomitant]
     Active Substance: FUROSEMIDE
     Dosage: 40 MILLIGRAM DAILY;
     Route: 048
     Dates: start: 20150602, end: 20150617
  17. ALDACTONE [Concomitant]
     Active Substance: SPIRONOLACTONE
     Dosage: 50 MILLIGRAM DAILY;
     Route: 048
     Dates: start: 20150617, end: 20150620
  18. BIOFERMIN R [Concomitant]
     Active Substance: BACILLUS SUBTILIS\LACTOBACILLUS ACIDOPHILUS\STREPTOCOCCUS FAECAIS
     Dosage: 3 GRAM DAILY;
     Route: 048
     Dates: start: 20150624, end: 20150705
  19. BIOFERMIN [Concomitant]
     Active Substance: BACILLUS SUBTILIS\LACTOBACILLUS ACIDOPHILUS\STREPTOCOCCUS FAECAIS
     Dosage: 3 GRAM DAILY;
     Route: 048
     Dates: start: 20150614, end: 20150623
  20. RINDERON V [Concomitant]
     Active Substance: BETAMETHASONE VALERATE
     Dosage: 6 MILLIGRAM DAILY;
     Route: 041
     Dates: start: 20150626, end: 20150628
  21. FENTOS [Concomitant]
     Active Substance: FENTANYL
     Route: 062
     Dates: start: 20150629, end: 20150708
  22. CEFCAPENE PIVOXIL HYDROCHLORIDE HYDRATE [Concomitant]
     Active Substance: CEFCAPENE PIVOXIL HYDROCHLORIDE HYDRATE
     Indication: HEPATITIS B ANTIGEN POSITIVE
     Dosage: 300 MILLIGRAM DAILY;
     Route: 048
     Dates: start: 20150619, end: 20150620
  23. KN NO.1 [Concomitant]
     Dosage: 500 ML DAILY;
     Route: 041
     Dates: start: 20150707, end: 20150708
  24. ATARAX-P [Concomitant]
     Active Substance: HYDROXYZINE HYDROCHLORIDE
     Dosage: 25 MILLIGRAM DAILY;
     Route: 041
     Dates: start: 20150708, end: 20150708
  25. E-FEN BUCCAL [Suspect]
     Active Substance: FENTANYL CITRATE
     Indication: BREAKTHROUGH PAIN
     Dosage: 200 MICROGRAM DAILY;
     Route: 002
     Dates: start: 20150602, end: 20150602
  26. CALONAL [Concomitant]
     Active Substance: ACETAMINOPHEN
     Indication: CANCER PAIN
     Dosage: 900 MILLIGRAM DAILY;
     Route: 048
     Dates: start: 20150601, end: 20150620
  27. BARACLUDE [Concomitant]
     Active Substance: ENTECAVIR
     Indication: HEPATITIS B ANTIGEN POSITIVE
     Route: 048
     Dates: end: 20150705
  28. ACELIO [Concomitant]
     Active Substance: ACETAMINOPHEN
     Route: 042
     Dates: start: 20150706, end: 20150707
  29. E-FEN BUCCAL [Suspect]
     Active Substance: FENTANYL CITRATE
     Dosage: DAILY DOSE 200 MICROGRAM-
     Route: 002
     Dates: start: 20150617, end: 20150707
  30. NEXIUM [Concomitant]
     Active Substance: ESOMEPRAZOLE MAGNESIUM
     Indication: PROPHYLAXIS
     Dosage: 20 MILLIGRAM DAILY;
     Route: 048
     Dates: end: 20150705
  31. SODIUM FERROUS CITRATE [Concomitant]
     Active Substance: SODIUM FERROUS CITRATE
     Indication: ANAEMIA
     Route: 048
     Dates: end: 20150705

REACTIONS (12)
  - Nausea [Recovering/Resolving]
  - Anaemia [Not Recovered/Not Resolved]
  - Renal impairment [Not Recovered/Not Resolved]
  - Dry mouth [Recovering/Resolving]
  - Breast cancer [Fatal]
  - Oedema peripheral [Not Recovered/Not Resolved]
  - Delirium [Not Recovered/Not Resolved]
  - Vomiting [Recovered/Resolved]
  - Hyperkalaemia [Not Recovered/Not Resolved]
  - Akathisia [Recovered/Resolved]
  - Somnolence [Recovered/Resolved]
  - White blood cell count decreased [Recovered/Resolved]

NARRATIVE: CASE EVENT DATE: 20150602
